FAERS Safety Report 13124859 (Version 1)
Quarter: 2017Q1

REPORT INFORMATION
  Report Type: Spontaneous
  Country: US (occurrence: US)
  Receive Date: 20170114
  Receipt Date: 20170114
  Transmission Date: 20170428
  Serious: Yes (Hospitalization)
  Sender: FDA-Public Use
  Company Number: None

PATIENT
  Age: 60 Year
  Sex: Female
  Weight: 96.2 kg

DRUGS (4)
  1. MERCAPTOPURINE. [Suspect]
     Active Substance: MERCAPTOPURINE
     Dates: end: 20161130
  2. CYTARABINE. [Suspect]
     Active Substance: CYTARABINE
     Dates: end: 20161127
  3. CYCLOPHOSPHAMIDE. [Suspect]
     Active Substance: CYCLOPHOSPHAMIDE
     Dates: end: 20161117
  4. METHOTREXATE. [Suspect]
     Active Substance: METHOTREXATE
     Dates: end: 20161201

REACTIONS (12)
  - Enterobacter bacteraemia [None]
  - Encephalopathy [None]
  - Mental status changes [None]
  - Hemiparesis [None]
  - Vomiting [None]
  - Diarrhoea [None]
  - Pancytopenia [None]
  - Blood culture positive [None]
  - Enterobacter test positive [None]
  - Dehydration [None]
  - Nausea [None]
  - Device related infection [None]

NARRATIVE: CASE EVENT DATE: 20161203
